FAERS Safety Report 25834226 (Version 2)
Quarter: 2025Q3

REPORT INFORMATION
  Report Type: Spontaneous
  Country: US (occurrence: US)
  Receive Date: 20250923
  Receipt Date: 20250925
  Transmission Date: 20251020
  Serious: No
  Sender: SANDOZ
  Company Number: US-SANDOZ-SDZ2025US067885

PATIENT
  Sex: Female

DRUGS (2)
  1. HYRIMOZ [Suspect]
     Active Substance: ADALIMUMAB-ADAZ
     Indication: Product used for unknown indication
     Route: 058
     Dates: start: 202206
  2. HYRIMOZ [Suspect]
     Active Substance: ADALIMUMAB-ADAZ
     Indication: Product used for unknown indication
     Route: 058
     Dates: start: 202206

REACTIONS (6)
  - Circumstance or information capable of leading to device use error [Unknown]
  - Drug dose omission by device [Unknown]
  - Device malfunction [Unknown]
  - Device delivery system issue [Unknown]
  - Needle issue [Unknown]
  - Device defective [Unknown]

NARRATIVE: CASE EVENT DATE: 20250901
